FAERS Safety Report 13968466 (Version 1)
Quarter: 2017Q3

REPORT INFORMATION
  Report Type: Report from Study
  Country: JP (occurrence: JP)
  Receive Date: 20170914
  Receipt Date: 20170914
  Transmission Date: 20171128
  Serious: Yes (Hospitalization)
  Sender: FDA-Public Use
  Company Number: JP-TEVA-806533ROM

PATIENT
  Age: 67 Year
  Sex: Male

DRUGS (1)
  1. RISEDRONATE SODIUM - BP [Suspect]
     Active Substance: RISEDRONATE SODIUM
     Indication: OSTEITIS DEFORMANS
     Dosage: 17.5 MILLIGRAM DAILY;
     Route: 048
     Dates: start: 20110705, end: 20110809

REACTIONS (2)
  - Cholelithiasis [Recovered/Resolved]
  - Liver function test increased [Recovered/Resolved]

NARRATIVE: CASE EVENT DATE: 20110816
